FAERS Safety Report 9860511 (Version 1)
Quarter: 2014Q1

REPORT INFORMATION
  Report Type: Spontaneous
  Country: US (occurrence: US)
  Receive Date: 20140202
  Receipt Date: 20140202
  Transmission Date: 20141002
  Serious: Yes (Other)
  Sender: FDA-Public Use
  Company Number: US-TEVA-459618USA

PATIENT
  Sex: Female

DRUGS (3)
  1. QVAR [Suspect]
     Indication: ASTHMA
  2. PREDNISONE [Concomitant]
  3. PNEUMONIA VACCINE [Concomitant]
     Indication: PROPHYLAXIS

REACTIONS (12)
  - Bronchitis bacterial [Unknown]
  - Feeling abnormal [Unknown]
  - Respiratory disorder [Unknown]
  - Muscle spasms [Unknown]
  - Herpes virus infection [Unknown]
  - Oral herpes [Unknown]
  - Vision blurred [Unknown]
  - Adverse event [Unknown]
  - Fatigue [Unknown]
  - Oxygen consumption [Unknown]
  - Cough decreased [Unknown]
  - Tooth disorder [Not Recovered/Not Resolved]
